FAERS Safety Report 12728097 (Version 6)
Quarter: 2022Q2

REPORT INFORMATION
  Report Type: Spontaneous
  Country: US (occurrence: US)
  Receive Date: 20160909
  Receipt Date: 20220414
  Transmission Date: 20220721
  Serious: Yes (Hospitalization, Other)
  Sender: FDA-Public Use
  Company Number: US-PFIZER INC-2016415626

PATIENT
  Age: 74 Year
  Sex: Female

DRUGS (1)
  1. XELJANZ XR [Suspect]
     Active Substance: TOFACITINIB CITRATE
     Dosage: 11 MG, DAILY
     Route: 048

REACTIONS (8)
  - Musculoskeletal stiffness [Unknown]
  - Dementia [Unknown]
  - Intervertebral disc operation [Unknown]
  - Skin disorder [Unknown]
  - Fatigue [Unknown]
  - Hypoacusis [Unknown]
  - Gait disturbance [Unknown]
  - Oropharyngeal pain [Unknown]
